FAERS Safety Report 11168551 (Version 2)
Quarter: 2015Q2

REPORT INFORMATION
  Report Type: Spontaneous
  Country: DE (occurrence: DE)
  Receive Date: 20150605
  Receipt Date: 20150626
  Transmission Date: 20150821
  Serious: Yes (Other)
  Sender: FDA-Public Use
  Company Number: DE-JNJFOC-20150602688

PATIENT
  Age: 68 Year
  Sex: Female
  Weight: 72.11 kg

DRUGS (4)
  1. XARELTO [Suspect]
     Active Substance: RIVAROXABAN
     Indication: EMBOLISM VENOUS
     Route: 048
     Dates: start: 201301
  2. HCT [Concomitant]
     Active Substance: HYDROCHLOROTHIAZIDE
     Route: 065
  3. L-THYROXIN [Concomitant]
     Active Substance: LEVOTHYROXINE SODIUM
     Route: 065
  4. XARELTO [Suspect]
     Active Substance: RIVAROXABAN
     Indication: RETINAL ARTERY THROMBOSIS
     Route: 048
     Dates: start: 201301

REACTIONS (4)
  - Deep vein thrombosis [Unknown]
  - Product use issue [Unknown]
  - Thrombophlebitis [Unknown]
  - Varicose vein [Unknown]

NARRATIVE: CASE EVENT DATE: 201301
